FAERS Safety Report 4913356-8 (Version None)
Quarter: 2006Q1

REPORT INFORMATION
  Report Type: 
  Country: None (occurrence: None)
  Receive Date: 20060215
  Receipt Date: 20060127
  Transmission Date: 20060701
  Serious: Yes (Death, Life-Threatening)
  Sender: FDA-Public Use
  Company Number: JP-MERCK-0602USA00123

PATIENT
  Age: 69 Year
  Sex: Male
  Weight: 40 kg

DRUGS (9)
  1. PRIMAXIN [Suspect]
     Indication: INFECTION PROPHYLAXIS
     Route: 042
     Dates: start: 20060121, end: 20060121
  2. PRIMAXIN [Suspect]
     Route: 042
     Dates: start: 20060122, end: 20060126
  3. BLOPRESS [Concomitant]
     Indication: HYPERTENSION
     Route: 048
     Dates: end: 20060126
  4. GANATON [Concomitant]
     Route: 048
  5. OMEPRAL [Concomitant]
     Indication: GASTRITIS
     Route: 048
     Dates: end: 20060126
  6. THEO-DUR [Concomitant]
     Indication: ASTHMA
     Route: 048
     Dates: end: 20060126
  7. ISOSORBIDE MONONITRATE [Concomitant]
     Indication: ANGINA PECTORIS
     Route: 048
  8. PURSENNID [Concomitant]
     Indication: CONSTIPATION
     Route: 048
  9. ULCERLMIN [Concomitant]
     Indication: RECTAL ULCER
     Route: 065

REACTIONS (7)
  - ASTHMA [None]
  - BRONCHITIS [None]
  - CONVULSION [None]
  - DEPRESSED LEVEL OF CONSCIOUSNESS [None]
  - HYPERTENSION [None]
  - RECTAL ULCER [None]
  - RENAL FAILURE CHRONIC [None]
